FAERS Safety Report 17444728 (Version 8)
Quarter: 2022Q2

REPORT INFORMATION
  Report Type: Spontaneous
  Country: GR (occurrence: GR)
  Receive Date: 20200221
  Receipt Date: 20220509
  Transmission Date: 20220720
  Serious: Yes (Hospitalization)
  Sender: FDA-Public Use
  Company Number: GR-ROCHE-2528781

PATIENT
  Sex: Female
  Weight: 60 kg

DRUGS (113)
  1. CUBICIN [Suspect]
     Active Substance: DAPTOMYCIN
     Indication: Hypertension
     Dosage: UNK
     Route: 065
  2. CUBICIN [Suspect]
     Active Substance: DAPTOMYCIN
     Indication: Anaemia
     Dosage: 350 MILLIGRAM, 1 CYCLE
     Route: 042
     Dates: start: 20200102, end: 20200113
  3. CUBICIN [Suspect]
     Active Substance: DAPTOMYCIN
     Indication: Diffuse large B-cell lymphoma
  4. CUBICIN [Suspect]
     Active Substance: DAPTOMYCIN
     Indication: Leukopenia
  5. CUBICIN [Suspect]
     Active Substance: DAPTOMYCIN
     Indication: Non-Hodgkin^s lymphoma
  6. CANCIDAS [Suspect]
     Active Substance: CASPOFUNGIN ACETATE
     Indication: Non-Hodgkin^s lymphoma
     Dosage: 50 MILLIGRAM
     Route: 042
     Dates: start: 20200105, end: 20200113
  7. CANCIDAS [Suspect]
     Active Substance: CASPOFUNGIN ACETATE
     Indication: Anaemia
     Dosage: UNKNOWN
     Route: 065
  8. CANCIDAS [Suspect]
     Active Substance: CASPOFUNGIN ACETATE
     Indication: Hypertension
  9. CANCIDAS [Suspect]
     Active Substance: CASPOFUNGIN ACETATE
     Indication: Diffuse large B-cell lymphoma
  10. CANCIDAS [Suspect]
     Active Substance: CASPOFUNGIN ACETATE
     Indication: Leukopenia
  11. DAPTOMYCIN [Suspect]
     Active Substance: DAPTOMYCIN
     Dosage: UNK
     Route: 065
  12. EPOETIN ALFA [Suspect]
     Active Substance: ERYTHROPOIETIN
     Indication: Anaemia
     Dosage: 1 CYCLE
     Route: 058
     Dates: start: 20190523, end: 20200124
  13. EPOETIN ALFA [Suspect]
     Active Substance: ERYTHROPOIETIN
     Indication: Anaemia
     Dosage: UNK
  14. EPOETIN ALFA [Suspect]
     Active Substance: ERYTHROPOIETIN
     Indication: Non-Hodgkin^s lymphoma
  15. EPOETIN ALFA [Suspect]
     Active Substance: ERYTHROPOIETIN
     Indication: Diffuse large B-cell lymphoma
  16. EPOETIN ALFA [Suspect]
     Active Substance: ERYTHROPOIETIN
     Indication: Leukopenia
  17. EPOETIN ALFA [Suspect]
     Active Substance: ERYTHROPOIETIN
     Indication: Hypertension
  18. RITUXIMAB [Suspect]
     Active Substance: RITUXIMAB
     Indication: Diffuse large B-cell lymphoma
     Dosage: 8 CYCLES
     Route: 042
     Dates: start: 20190513, end: 20191013
  19. RITUXIMAB [Suspect]
     Active Substance: RITUXIMAB
     Indication: Non-Hodgkin^s lymphoma
     Dosage: 2 CYCLES
     Route: 042
     Dates: start: 20191113, end: 20191223
  20. RITUXIMAB [Suspect]
     Active Substance: RITUXIMAB
     Dosage: UNK
  21. CISPLATIN [Suspect]
     Active Substance: CISPLATIN
     Indication: Non-Hodgkin^s lymphoma
     Dosage: UNK
     Route: 058
  22. CISPLATIN [Suspect]
     Active Substance: CISPLATIN
     Indication: Diffuse large B-cell lymphoma
     Dosage: 38 MILLIGRAM (2 CYCLES)
     Route: 042
     Dates: start: 20191119, end: 20200113
  23. CISPLATIN [Suspect]
     Active Substance: CISPLATIN
     Route: 042
  24. ALDACTONE [Suspect]
     Active Substance: SPIRONOLACTONE
     Indication: Non-Hodgkin^s lymphoma
     Dosage: 100 MILLIGRAM (1 CYCLE)
     Route: 048
     Dates: start: 20200105, end: 20200112
  25. ALDACTONE [Suspect]
     Active Substance: SPIRONOLACTONE
     Indication: Non-Hodgkin^s lymphoma
     Dosage: UNK
     Route: 042
  26. VEPESID [Suspect]
     Active Substance: ETOPOSIDE
     Indication: Non-Hodgkin^s lymphoma
     Dosage: UNK
     Route: 058
  27. VEPESID [Suspect]
     Active Substance: ETOPOSIDE
     Indication: Hypertension
     Dosage: 90 MILLIGRAM (2 CYCLES)
     Route: 042
     Dates: start: 20191119, end: 20200113
  28. VEPESID [Suspect]
     Active Substance: ETOPOSIDE
     Indication: Leukopenia
  29. VEPESID [Suspect]
     Active Substance: ETOPOSIDE
     Indication: Diffuse large B-cell lymphoma
  30. VEPESID [Suspect]
     Active Substance: ETOPOSIDE
     Indication: Anaemia
  31. MABTHERA [Suspect]
     Active Substance: RITUXIMAB
     Indication: Non-Hodgkin^s lymphoma
     Dosage: 1400 MILLIGRAM (6 CYCLES)
     Route: 058
     Dates: start: 20190625, end: 20191009
  32. MABTHERA [Suspect]
     Active Substance: RITUXIMAB
     Indication: Diffuse large B-cell lymphoma
     Dosage: 1400 MILLIGRAM (1 CYCLE)
     Route: 058
     Dates: start: 20191113, end: 20191210
  33. MABTHERA [Suspect]
     Active Substance: RITUXIMAB
     Indication: Anaemia
     Dosage: 650 MILLIGRAM (1 CYCLE)
     Route: 042
     Dates: start: 20191222, end: 20200113
  34. MABTHERA [Suspect]
     Active Substance: RITUXIMAB
     Indication: Leukopenia
     Dosage: UNK
  35. MABTHERA [Suspect]
     Active Substance: RITUXIMAB
     Indication: Hypertension
     Dosage: UNK
  36. NORVASC [Suspect]
     Active Substance: AMLODIPINE BESYLATE
     Indication: Hypertension
     Dosage: UNK
     Route: 058
  37. NORVASC [Suspect]
     Active Substance: AMLODIPINE BESYLATE
     Indication: Diffuse large B-cell lymphoma
     Dosage: 5 MILLIGRAM
     Route: 048
     Dates: start: 20190515, end: 20190516
  38. NORVASC [Suspect]
     Active Substance: AMLODIPINE BESYLATE
     Indication: Anaemia
     Dosage: UNKNOWN
     Route: 048
  39. NORVASC [Suspect]
     Active Substance: AMLODIPINE BESYLATE
     Indication: Non-Hodgkin^s lymphoma
  40. NORVASC [Suspect]
     Active Substance: AMLODIPINE BESYLATE
     Indication: Leukopenia
  41. VALTREX [Suspect]
     Active Substance: VALACYCLOVIR HYDROCHLORIDE
     Indication: Non-Hodgkin^s lymphoma
     Dosage: UNK
     Route: 058
  42. VALTREX [Suspect]
     Active Substance: VALACYCLOVIR HYDROCHLORIDE
     Indication: Diffuse large B-cell lymphoma
     Dosage: UNK
     Route: 042
  43. VALTREX [Suspect]
     Active Substance: VALACYCLOVIR HYDROCHLORIDE
     Indication: Anaemia
     Dosage: 500 G CYCLE
     Route: 048
     Dates: start: 20200108, end: 20200113
  44. VALTREX [Suspect]
     Active Substance: VALACYCLOVIR HYDROCHLORIDE
     Indication: Leukopenia
     Dosage: 500 MG
     Route: 048
     Dates: start: 20190513, end: 20190516
  45. VALTREX [Suspect]
     Active Substance: VALACYCLOVIR HYDROCHLORIDE
     Indication: Hypertension
  46. CHLORPHENIRAMINE MALEATE [Suspect]
     Active Substance: CHLORPHENIRAMINE MALEATE
     Indication: Non-Hodgkin^s lymphoma
     Dosage: 1 CYCLE
     Route: 048
     Dates: start: 20200110, end: 20200112
  47. CHLORPHENIRAMINE MALEATE [Suspect]
     Active Substance: CHLORPHENIRAMINE MALEATE
     Indication: Diffuse large B-cell lymphoma
     Dosage: UNK
     Route: 048
  48. CHLORPHENIRAMINE MALEATE [Suspect]
     Active Substance: CHLORPHENIRAMINE MALEATE
     Indication: Anaemia
     Dosage: UNK
     Route: 042
  49. CHLORPHENIRAMINE MALEATE [Suspect]
     Active Substance: CHLORPHENIRAMINE MALEATE
     Indication: Leukopenia
  50. CHLORPHENIRAMINE MALEATE [Suspect]
     Active Substance: CHLORPHENIRAMINE MALEATE
     Indication: Hypertension
  51. DOXORUBICIN [Suspect]
     Active Substance: DOXORUBICIN
     Indication: Non-Hodgkin^s lymphoma
     Dosage: 8 CYCLES, 75.0MG UNKNOWN
     Route: 042
     Dates: start: 20190513, end: 20191009
  52. DOXORUBICIN [Suspect]
     Active Substance: DOXORUBICIN
     Indication: Diffuse large B-cell lymphoma
     Dosage: UNK
     Route: 058
  53. DOXORUBICIN [Suspect]
     Active Substance: DOXORUBICIN
     Indication: Leukopenia
     Dosage: UNK
  54. DOXORUBICIN [Suspect]
     Active Substance: DOXORUBICIN
     Indication: Hypertension
     Dosage: UNKNOWN
     Route: 042
  55. DOXORUBICIN [Suspect]
     Active Substance: DOXORUBICIN
     Indication: Anaemia
  56. HYALURONIDASE [Suspect]
     Active Substance: HYALURONIDASE
     Indication: Diffuse large B-cell lymphoma
     Dosage: 3 CYCLES
     Route: 058
     Dates: start: 20190513, end: 20190625
  57. FILGRASTIM [Suspect]
     Active Substance: FILGRASTIM
     Indication: Leukopenia
     Dosage: UNK
     Route: 058
     Dates: start: 20190523, end: 20200117
  58. FILGRASTIM [Suspect]
     Active Substance: FILGRASTIM
     Indication: Non-Hodgkin^s lymphoma
  59. FILGRASTIM [Suspect]
     Active Substance: FILGRASTIM
     Indication: Diffuse large B-cell lymphoma
  60. FILGRASTIM [Suspect]
     Active Substance: FILGRASTIM
     Indication: Hypertension
  61. FILGRASTIM [Suspect]
     Active Substance: FILGRASTIM
     Indication: Anaemia
  62. CYTARABINE [Suspect]
     Active Substance: CYTARABINE
     Indication: Non-Hodgkin^s lymphoma
     Dosage: 3 GRAM (2 CYCLES)
     Route: 042
     Dates: start: 20191123, end: 20200113
  63. CYTARABINE [Suspect]
     Active Substance: CYTARABINE
     Indication: Diffuse large B-cell lymphoma
     Dosage: UNK
     Route: 058
  64. CYTARABINE [Suspect]
     Active Substance: CYTARABINE
     Dosage: 3 G 2 CYCLES
     Route: 042
     Dates: start: 20191123, end: 20200113
  65. CISPLATIN\CYTARABINE\ETOPOSIDE\METHYLPREDNISOLONE (ESHAP) [Suspect]
     Active Substance: CISPLATIN\CYTARABINE\ETOPOSIDE\METHYLPREDNISOLONE (ESHAP)
     Indication: Diffuse large B-cell lymphoma
     Dosage: 2 CYCLES
     Route: 042
     Dates: start: 20191113, end: 20191223
  66. CYCLOPHOSPHAMIDE\DOXORUBICIN\PREDNISONE\VINCRISTINE SULFATE [Suspect]
     Active Substance: CYCLOPHOSPHAMIDE\DOXORUBICIN\PREDNISONE\VINCRISTINE SULFATE
     Indication: Diffuse large B-cell lymphoma
     Dosage: 8 CYCLES
     Route: 042
     Dates: start: 20190513, end: 20191013
  67. MEROPENEM [Suspect]
     Active Substance: MEROPENEM
     Indication: Non-Hodgkin^s lymphoma
     Dosage: 1 CYCLE 2G X 3
     Route: 042
     Dates: start: 20200103, end: 20200113
  68. ALBUMIN HUMAN [Suspect]
     Active Substance: ALBUMIN HUMAN
     Indication: Non-Hodgkin^s lymphoma
     Dosage: 1 CYCLE 50MG X2
     Route: 042
     Dates: start: 20200110, end: 20200113
  69. ALBUMIN HUMAN [Suspect]
     Active Substance: ALBUMIN HUMAN
     Indication: Anaemia
  70. ALBUMIN HUMAN [Suspect]
     Active Substance: ALBUMIN HUMAN
     Indication: Leukopenia
  71. ALBUMIN HUMAN [Suspect]
     Active Substance: ALBUMIN HUMAN
     Indication: Hypertension
  72. ALBUMIN HUMAN [Suspect]
     Active Substance: ALBUMIN HUMAN
     Indication: Diffuse large B-cell lymphoma
  73. LOSEC [Suspect]
     Active Substance: OMEPRAZOLE
     Indication: Anaemia
     Dosage: 1 CYCLES TWICE
     Route: 048
     Dates: start: 20191223, end: 20200113
  74. LOSEC [Suspect]
     Active Substance: OMEPRAZOLE
     Indication: Leukopenia
  75. LOSEC [Suspect]
     Active Substance: OMEPRAZOLE
     Indication: Diffuse large B-cell lymphoma
  76. LOSEC [Suspect]
     Active Substance: OMEPRAZOLE
     Indication: Non-Hodgkin^s lymphoma
  77. LOSEC [Suspect]
     Active Substance: OMEPRAZOLE
     Indication: Hypertension
  78. ALDACTONE [Suspect]
     Active Substance: SPIRONOLACTONE
     Indication: Leukopenia
  79. ALDACTONE [Suspect]
     Active Substance: SPIRONOLACTONE
     Indication: Anaemia
  80. ALDACTONE [Suspect]
     Active Substance: SPIRONOLACTONE
     Indication: Hypertension
  81. LASIX [Suspect]
     Active Substance: FUROSEMIDE
     Indication: Leukopenia
     Dosage: 1 CYCLE
     Route: 042
     Dates: start: 20200110, end: 20200113
  82. LASIX [Suspect]
     Active Substance: FUROSEMIDE
     Indication: Anaemia
  83. LASIX [Suspect]
     Active Substance: FUROSEMIDE
     Indication: Hypertension
  84. LASIX [Suspect]
     Active Substance: FUROSEMIDE
     Indication: Non-Hodgkin^s lymphoma
  85. LASIX [Suspect]
     Active Substance: FUROSEMIDE
     Indication: Diffuse large B-cell lymphoma
  86. VINCRISTINE SULFATE [Suspect]
     Active Substance: VINCRISTINE SULFATE
     Indication: Hypertension
     Dosage: UNKNOWN
     Route: 065
  87. VINCRISTINE SULFATE [Suspect]
     Active Substance: VINCRISTINE SULFATE
     Indication: Anaemia
  88. VINCRISTINE SULFATE [Suspect]
     Active Substance: VINCRISTINE SULFATE
     Indication: Leukopenia
  89. VINCRISTINE SULFATE [Suspect]
     Active Substance: VINCRISTINE SULFATE
     Indication: Diffuse large B-cell lymphoma
  90. VINCRISTINE SULFATE [Suspect]
     Active Substance: VINCRISTINE SULFATE
     Indication: Non-Hodgkin^s lymphoma
  91. METHYLPREDNISOLONE [Suspect]
     Active Substance: METHYLPREDNISOLONE
     Indication: Diffuse large B-cell lymphoma
     Dosage: UNKNOWN
  92. METHYLPREDNISOLONE [Suspect]
     Active Substance: METHYLPREDNISOLONE
     Dosage: UNK
  93. ERYTHROPOIETIN [Suspect]
     Active Substance: ERYTHROPOIETIN
     Indication: Hypertension
     Dosage: UNKNOWN
     Route: 065
  94. ERYTHROPOIETIN [Suspect]
     Active Substance: ERYTHROPOIETIN
     Indication: Diffuse large B-cell lymphoma
  95. ERYTHROPOIETIN [Suspect]
     Active Substance: ERYTHROPOIETIN
     Indication: Anaemia
  96. ERYTHROPOIETIN [Suspect]
     Active Substance: ERYTHROPOIETIN
     Indication: Leukopenia
  97. ERYTHROPOIETIN [Suspect]
     Active Substance: ERYTHROPOIETIN
     Indication: Non-Hodgkin^s lymphoma
  98. CYTARABINE [Suspect]
     Active Substance: CYTARABINE
     Indication: Leukopenia
     Dosage: UNKNOWN
     Route: 065
  99. CYTARABINE [Suspect]
     Active Substance: CYTARABINE
     Indication: Hypertension
  100. CYTARABINE [Suspect]
     Active Substance: CYTARABINE
     Indication: Anaemia
  101. CYTARABINE [Suspect]
     Active Substance: CYTARABINE
     Indication: Non-Hodgkin^s lymphoma
  102. CYTARABINE [Suspect]
     Active Substance: CYTARABINE
     Indication: Diffuse large B-cell lymphoma
  103. PREDNISONE [Suspect]
     Active Substance: PREDNISONE
     Indication: Leukopenia
     Dosage: UNK
     Route: 065
  104. PREDNISONE [Suspect]
     Active Substance: PREDNISONE
     Indication: Diffuse large B-cell lymphoma
  105. PREDNISONE [Suspect]
     Active Substance: PREDNISONE
     Indication: Non-Hodgkin^s lymphoma
  106. PREDNISONE [Suspect]
     Active Substance: PREDNISONE
     Indication: Anaemia
  107. PREDNISONE [Suspect]
     Active Substance: PREDNISONE
     Indication: Hypertension
  108. CYCLOPHOSPHAMIDE [Suspect]
     Active Substance: CYCLOPHOSPHAMIDE
     Indication: Diffuse large B-cell lymphoma
     Dosage: UNK
     Route: 065
  109. CYCLOPHOSPHAMIDE [Suspect]
     Active Substance: CYCLOPHOSPHAMIDE
     Indication: Anaemia
  110. CYCLOPHOSPHAMIDE [Suspect]
     Active Substance: CYCLOPHOSPHAMIDE
     Indication: Hypertension
  111. CYCLOPHOSPHAMIDE [Suspect]
     Active Substance: CYCLOPHOSPHAMIDE
     Indication: Non-Hodgkin^s lymphoma
  112. CYCLOPHOSPHAMIDE [Suspect]
     Active Substance: CYCLOPHOSPHAMIDE
     Indication: Leukopenia
  113. ALDACTONE [Suspect]
     Active Substance: SPIRONOLACTONE
     Dosage: UNKNOWN
     Route: 048

REACTIONS (6)
  - Diffuse large B-cell lymphoma refractory [Unknown]
  - Disease progression [Unknown]
  - Neoplasm progression [Unknown]
  - Off label use [Unknown]
  - No adverse event [Unknown]
  - Product use in unapproved indication [Unknown]

NARRATIVE: CASE EVENT DATE: 20191223
